FAERS Safety Report 8508935-5 (Version None)
Quarter: 2012Q3

REPORT INFORMATION
  Report Type: 
  Country: None (occurrence: None)
  Receive Date: 20120713
  Receipt Date: 20120706
  Transmission Date: 20120928
  Serious: Yes (Other)
  Sender: FDA-Public Use
  Company Number: US-JNJFOC-20120613543

PATIENT
  Sex: Male
  Weight: 54.43 kg

DRUGS (7)
  1. RISPERDAL [Suspect]
     Indication: AGGRESSION
     Dosage: SPLITTING THE 1MG TABLET INTO THREES
     Route: 048
  2. RISPERDAL [Suspect]
     Dosage: THIRD OF TABLET ONCE A DAY
     Route: 048
  3. RISPERDAL [Suspect]
     Route: 048
  4. RISPERDAL [Suspect]
     Indication: AUTISM
     Dosage: THIRD OF TABLET ONCE A DAY
     Route: 048
  5. RISPERDAL [Suspect]
     Dosage: SPLITTING THE 1MG TABLET INTO THREES
     Route: 048
  6. RISPERDAL [Suspect]
     Route: 048
  7. TENEX [Concomitant]
     Indication: AUTISM
     Route: 065

REACTIONS (7)
  - DYSKINESIA [None]
  - WRONG TECHNIQUE IN DRUG USAGE PROCESS [None]
  - INTENTIONAL DRUG MISUSE [None]
  - ABNORMAL BEHAVIOUR [None]
  - STREPTOCOCCAL INFECTION [None]
  - THERAPEUTIC RESPONSE INCREASED [None]
  - TIC [None]
